FAERS Safety Report 24943784 (Version 1)
Quarter: 2025Q1

REPORT INFORMATION
  Report Type: Spontaneous
  Country: DE (occurrence: DE)
  Receive Date: 20250207
  Receipt Date: 20250207
  Transmission Date: 20250408
  Serious: Yes (Other)
  Sender: INCYTE
  Company Number: DE-INCYTE CORPORATION-2025IN001263

PATIENT

DRUGS (1)
  1. OPZELURA [Suspect]
     Active Substance: RUXOLITINIB PHOSPHATE
     Indication: Vitiligo
     Route: 065

REACTIONS (3)
  - Immunodeficiency [Unknown]
  - Infection [Unknown]
  - Influenza like illness [Unknown]
